FAERS Safety Report 7268293-3 (Version None)
Quarter: 2011Q1

REPORT INFORMATION
  Report Type: 
  Country: None (occurrence: None)
  Receive Date: 20110201
  Receipt Date: 20110126
  Transmission Date: 20110831
  Serious: Yes (Hospitalization, Other)
  Sender: FDA-Public Use
  Company Number: US-ABBOTT-11P-163-0701111-00

PATIENT
  Weight: 81.72 kg

DRUGS (4)
  1. LOPID [Concomitant]
     Indication: BLOOD TRIGLYCERIDES INCREASED
  2. PRAVACHOL [Concomitant]
     Indication: BLOOD CHOLESTEROL INCREASED
  3. CLARITHROMYCIN [Suspect]
     Indication: SINUSITIS
     Dates: start: 20091014, end: 20091028
  4. STEROIDS [Suspect]
     Indication: NEPHRITIS
     Dates: start: 20091201, end: 20101201

REACTIONS (10)
  - VOMITING [None]
  - FEELING ABNORMAL [None]
  - DYSGEUSIA [None]
  - NEPHRITIS [None]
  - BLOOD POTASSIUM DECREASED [None]
  - NAUSEA [None]
  - DYSPNOEA [None]
  - RENAL FAILURE [None]
  - BLOOD COUNT ABNORMAL [None]
  - CHEST DISCOMFORT [None]
